FAERS Safety Report 4333066-8 (Version None)
Quarter: 2004Q2

REPORT INFORMATION
  Report Type: 
  Country: None (occurrence: None)
  Receive Date: 20040401
  Receipt Date: 20040319
  Transmission Date: 20050107
  Serious: Yes (Hospitalization)
  Sender: FDA-Public Use
  Company Number: S04-USA-00578-01

PATIENT
  Age: 36 Year
  Sex: Female

DRUGS (6)
  1. LEXAPRO [Suspect]
     Indication: DEPRESSION
     Dosage: 20 MG QD PO
     Route: 048
     Dates: start: 20030624
  2. CLOZAPINE [Suspect]
     Indication: SCHIZOAFFECTIVE DISORDER
     Dosage: 650 MG QD
     Dates: start: 20031018, end: 20031129
  3. HALDOL [Suspect]
     Indication: AGITATION
     Dosage: 2 MG Q4HR
     Dates: start: 20030610, end: 20031201
  4. PREVACID [Concomitant]
  5. FERROUS SULFATE TAB [Concomitant]
  6. SURFAK (DOCUSATE CALCIUM) [Concomitant]

REACTIONS (4)
  - BLOOD ALKALINE PHOSPHATASE INCREASED [None]
  - HEPATITIS [None]
  - JAUNDICE [None]
  - PROTEIN TOTAL DECREASED [None]
